FAERS Safety Report 6675137-7 (Version None)
Quarter: 2010Q2

REPORT INFORMATION
  Report Type: 
  Country: None (occurrence: None)
  Receive Date: 20100409
  Receipt Date: 20100330
  Transmission Date: 20101027
  Serious: Yes (Other)
  Sender: FDA-Public Use
  Company Number: CO-PFIZER INC-2010041999

PATIENT
  Age: 51 Year
  Sex: Female

DRUGS (4)
  1. LIPITOR [Suspect]
     Indication: DYSLIPIDAEMIA
     Dosage: 40 MG, 1X/DAY
     Route: 048
     Dates: start: 20100314, end: 20100316
  2. ACCURETIC [Suspect]
     Indication: HYPERTENSION
     Dosage: 20 MG, 1X/DAY
     Dates: start: 20100314
  3. LOSARTAN [Concomitant]
     Dosage: 50 MG, 2X/DAY
  4. METOPROLOL [Concomitant]
     Dosage: 50 MG, 1X/DAY

REACTIONS (1)
  - TACHYCARDIA [None]
